FAERS Safety Report 5854128-X (Version None)
Quarter: 2008Q3

REPORT INFORMATION
  Report Type: 
  Country: None (occurrence: None)
  Receive Date: 20080822
  Receipt Date: 20080401
  Transmission Date: 20090109
  Serious: Yes (Other)
  Sender: FDA-Public Use
  Company Number: US-BRISTOL-MYERS SQUIBB COMPANY-14137582

PATIENT
  Sex: Male

DRUGS (1)
  1. MAXIPIME [Suspect]
     Indication: CYSTIC FIBROSIS
     Route: 042

REACTIONS (1)
  - ANAPHYLACTIC REACTION [None]
